FAERS Safety Report 22521413 (Version 1)
Quarter: 2023Q2

REPORT INFORMATION
  Report Type: Spontaneous
  Country: US (occurrence: None)
  Receive Date: 20230602
  Receipt Date: 20230602
  Transmission Date: 20230722
  Serious: Yes (Hospitalization)
  Sender: FDA-Public Use
  Company Number: None

PATIENT
  Age: 85 Year
  Sex: Male

DRUGS (6)
  1. ULTOMIRIS [Suspect]
     Active Substance: RAVULIZUMAB-CWVZ
     Indication: Myasthenia gravis
     Dosage: 1100 MG/11 ML INTRAVENOUS??INFUSE 3,300 MG INTO A VENOUS CATHETER EVERY 8 WEEKS
     Route: 042
     Dates: start: 20230405
  2. ALLANTOIN POW [Concomitant]
  3. DIGOXIN [Concomitant]
     Dosage: OTHER QUANTITY : 0.125MG ;?
  4. LOVASTATIN TAB [Concomitant]
  5. PROTONIX PAK [Concomitant]
  6. VITAMIN D3 [Concomitant]
     Active Substance: CHOLECALCIFEROL

REACTIONS (2)
  - Insomnia [None]
  - Dyspnoea [None]

NARRATIVE: CASE EVENT DATE: 20230527
